FAERS Safety Report 8476045-1 (Version None)
Quarter: 2012Q2

REPORT INFORMATION
  Report Type: 
  Country: None (occurrence: None)
  Receive Date: 20120628
  Receipt Date: 20120618
  Transmission Date: 20120825
  Serious: Yes (Death, Life-Threatening, Hospitalization, Other)
  Sender: FDA-Public Use
  Company Number: ZW-ABBOTT-11P-190-0731514-00

PATIENT
  Age: 39 Year
  Sex: Male

DRUGS (6)
  1. COTRIM [Concomitant]
     Indication: PRODUCT USED FOR UNKNOWN INDICATION
     Dates: start: 20020615
  2. ABACAVIR [Concomitant]
     Indication: PRODUCT USED FOR UNKNOWN INDICATION
     Dates: start: 20110609
  3. LOPINAVIR/RITONAVIR [Suspect]
     Indication: HIV INFECTION
     Route: 048
     Dates: start: 20110317
  4. FLUCONAZOLE [Concomitant]
     Indication: PRODUCT USED FOR UNKNOWN INDICATION
     Dates: start: 20100915
  5. DIDANOSINE [Concomitant]
     Indication: PRODUCT USED FOR UNKNOWN INDICATION
     Dates: start: 20110609
  6. TEVOLAM [Concomitant]
     Indication: PRODUCT USED FOR UNKNOWN INDICATION
     Dates: start: 20110317, end: 20110517

REACTIONS (10)
  - HEADACHE [None]
  - LYMPHADENITIS [None]
  - EXTRAPULMONARY TUBERCULOSIS [None]
  - PALLOR [None]
  - PULMONARY TUBERCULOSIS [None]
  - JAUNDICE [None]
  - CHILLS [None]
  - PYREXIA [None]
  - RENAL FAILURE ACUTE [None]
  - HILAR LYMPHADENOPATHY [None]
